FAERS Safety Report 14303213 (Version 1)
Quarter: 2017Q4

REPORT INFORMATION
  Report Type: Spontaneous
  Country: US (occurrence: US)
  Receive Date: 20171219
  Receipt Date: 20171219
  Transmission Date: 20180321
  Serious: Yes (Other)
  Sender: FDA-Public Use
  Company Number: US-ELI_LILLY_AND_COMPANY-US201712006588

PATIENT
  Sex: Male

DRUGS (4)
  1. HUMULIN NOS [Suspect]
     Active Substance: INSULIN HUMAN
     Dosage: 55 U, EACH EVENING
     Route: 065
  2. HUMULIN NOS [Suspect]
     Active Substance: INSULIN HUMAN
     Dosage: 78 U, EACH MORNING
     Route: 065
  3. HUMULIN NOS [Suspect]
     Active Substance: INSULIN HUMAN
     Dosage: 55 U, EACH EVENING
     Route: 065
  4. HUMULIN NOS [Suspect]
     Active Substance: INSULIN HUMAN
     Indication: PRODUCT USED FOR UNKNOWN INDICATION
     Dosage: 78 U, EACH MORNING
     Route: 065

REACTIONS (2)
  - Injury associated with device [Unknown]
  - Epilepsy [Unknown]
